FAERS Safety Report 5586516-3 (Version None)
Quarter: 2007Q4

REPORT INFORMATION
  Report Type: 
  Country: None (occurrence: None)
  Receive Date: 20071205
  Receipt Date: 20070919
  Transmission Date: 20080405
  Serious: Yes (Other)
  Sender: FDA-Public Use
  Company Number: HQWYE283224SEP07

PATIENT
  Age: 28 Year
  Sex: Female

DRUGS (2)
  1. EFFEXOR XR [Suspect]
     Indication: DEPRESSION
     Dosage: 2 CAPSULES DAILY ; 1 CAPSULE DAILY, ORAL
     Route: 048
     Dates: start: 20070101, end: 20070101
  2. EFFEXOR XR [Suspect]
     Indication: DEPRESSION
     Dosage: 2 CAPSULES DAILY ; 1 CAPSULE DAILY, ORAL
     Route: 048
     Dates: start: 20070101, end: 20070101

REACTIONS (2)
  - DRUG INEFFECTIVE [None]
  - INAPPROPRIATE SCHEDULE OF DRUG ADMINISTRATION [None]
